FAERS Safety Report 25119869 (Version 1)
Quarter: 2025Q1

REPORT INFORMATION
  Report Type: Spontaneous
  Country: US (occurrence: US)
  Receive Date: 20250325
  Receipt Date: 20250325
  Transmission Date: 20250408
  Serious: Yes (Death, Other)
  Sender: ELI LILLY AND COMPANY
  Company Number: US-ELI_LILLY_AND_COMPANY-US202503016449

PATIENT
  Age: 25 Year
  Sex: Male
  Weight: 108.84 kg

DRUGS (10)
  1. CYMBALTA [Interacting]
     Active Substance: DULOXETINE HYDROCHLORIDE
     Indication: Product used for unknown indication
     Route: 065
  2. CYMBALTA [Interacting]
     Active Substance: DULOXETINE HYDROCHLORIDE
     Route: 065
  3. LAMOTRIGINE [Interacting]
     Active Substance: LAMOTRIGINE
     Indication: Product used for unknown indication
     Route: 065
  4. LAMOTRIGINE [Interacting]
     Active Substance: LAMOTRIGINE
     Route: 065
  5. TESTOSTERONE [Interacting]
     Active Substance: TESTOSTERONE
     Indication: Blood testosterone abnormal
     Route: 065
     Dates: start: 202103
  6. TESTOSTERONE [Interacting]
     Active Substance: TESTOSTERONE
     Route: 065
  7. BUSPIRONE [Interacting]
     Active Substance: BUSPIRONE HYDROCHLORIDE
     Indication: Product used for unknown indication
     Route: 065
  8. BUSPIRONE [Interacting]
     Active Substance: BUSPIRONE HYDROCHLORIDE
     Route: 065
  9. ATIVAN [Interacting]
     Active Substance: LORAZEPAM
     Indication: Anxiety
     Route: 065
  10. ATIVAN [Interacting]
     Active Substance: LORAZEPAM
     Route: 065

REACTIONS (18)
  - Completed suicide [Fatal]
  - Renal impairment [Unknown]
  - Seizure [Unknown]
  - Abnormal behaviour [Unknown]
  - Intrusive thoughts [Unknown]
  - Off label use [Unknown]
  - Intentional self-injury [Unknown]
  - Mood swings [Unknown]
  - Anger [Unknown]
  - Mydriasis [Unknown]
  - Drug interaction [Unknown]
  - Insomnia [Unknown]
  - Dizziness [Unknown]
  - Hallucination, auditory [Unknown]
  - Libido decreased [Unknown]
  - Drug withdrawal syndrome [Unknown]
  - Aggression [Unknown]
  - Drug ineffective [Unknown]

NARRATIVE: CASE EVENT DATE: 20240521
